FAERS Safety Report 19923320 (Version 1)
Quarter: 2021Q4

REPORT INFORMATION
  Report Type: Report from Study
  Country: IN (occurrence: IN)
  Receive Date: 20211005
  Receipt Date: 20211005
  Transmission Date: 20220303
  Serious: Yes (Death, Other)
  Sender: FDA-Public Use
  Company Number: IN-NOVARTISPH-PHHY2018IN027822

PATIENT
  Age: 44 Year
  Sex: Male

DRUGS (2)
  1. GLIVEC [Suspect]
     Active Substance: IMATINIB MESYLATE
     Indication: Chronic myeloid leukaemia
     Dosage: 400 MG
     Route: 065
  2. GLIVEC [Suspect]
     Active Substance: IMATINIB MESYLATE
     Dosage: 600 MG (1 X 400 MG AND 2 X 100 MG TABLETS)
     Route: 065

REACTIONS (5)
  - Death [Fatal]
  - Chronic myeloid leukaemia [Unknown]
  - Tyrosine kinase mutation [Unknown]
  - Drug intolerance [Unknown]
  - Treatment failure [Unknown]

NARRATIVE: CASE EVENT DATE: 20210531
